FAERS Safety Report 19709622 (Version 1)
Quarter: 2021Q3

REPORT INFORMATION
  Report Type: Report from Study
  Country: US (occurrence: US)
  Receive Date: 20210816
  Receipt Date: 20210816
  Transmission Date: 20211014
  Serious: Yes (Death)
  Sender: FDA-Public Use
  Company Number: US-JNJFOC-20210821322

PATIENT
  Sex: Female

DRUGS (2)
  1. SELEXIPAG [Suspect]
     Active Substance: SELEXIPAG
     Indication: PULMONARY ARTERIAL HYPERTENSION
     Dosage: EVERY MORNING
     Route: 048
     Dates: start: 20200914
  2. SELEXIPAG [Suspect]
     Active Substance: SELEXIPAG
     Dosage: EVERY EVENING
     Route: 048
     Dates: start: 20200914

REACTIONS (1)
  - Death [Fatal]
